FAERS Safety Report 24014914 (Version 1)
Quarter: 2024Q2

REPORT INFORMATION
  Report Type: Spontaneous
  Country: US (occurrence: None)
  Receive Date: 20240625
  Receipt Date: 20240625
  Transmission Date: 20240716
  Serious: No
  Sender: FDA-Public Use
  Company Number: None

PATIENT
  Age: 53 Year
  Sex: Male

DRUGS (1)
  1. TAVNEOS [Suspect]
     Active Substance: AVACOPAN
     Dosage: 30MG (3 CAPS)TWICE DAILY BY MOUTH?
     Route: 048
     Dates: start: 20240410

REACTIONS (2)
  - Abdominal pain upper [None]
  - Toothache [None]
